FAERS Safety Report 16110611 (Version 1)
Quarter: 2019Q1

REPORT INFORMATION
  Report Type: Report from Study
  Country: DE (occurrence: DE)
  Receive Date: 20190325
  Receipt Date: 20190325
  Transmission Date: 20190418
  Serious: Yes (Hospitalization, Other)
  Sender: FDA-Public Use
  Company Number: DE-BRISTOL-MYERS SQUIBB COMPANY-BMS-2017-080665

PATIENT
  Age: 71 Year
  Sex: Male

DRUGS (9)
  1. NIVOLUMAB [Suspect]
     Active Substance: NIVOLUMAB
     Indication: NON-SMALL CELL LUNG CANCER
     Dosage: 240 MG, Q3WK
     Route: 042
     Dates: start: 20170822
  2. DEKRISTOL [Concomitant]
     Active Substance: CHOLECALCIFEROL
     Indication: PRODUCT USED FOR UNKNOWN INDICATION
     Dosage: 20000 IU, Q2WK
     Route: 065
  3. CANDESARTAN. [Concomitant]
     Active Substance: CANDESARTAN
     Indication: PROPHYLAXIS
     Dosage: 8 MG, UNK
     Route: 065
  4. PANTOZOL [Concomitant]
     Active Substance: PANTOPRAZOLE SODIUM
     Indication: PROPHYLAXIS
     Dosage: 40 MG, UNK
     Route: 065
  5. PROLIA [Concomitant]
     Active Substance: DENOSUMAB
     Indication: PRODUCT USED FOR UNKNOWN INDICATION
     Dosage: UNK, Q6MO
     Route: 065
  6. REMERGIL [Concomitant]
     Active Substance: MIRTAZAPINE
     Indication: PROPHYLAXIS
     Dosage: 15 MG, UNK
     Route: 065
  7. XARELTO [Concomitant]
     Active Substance: RIVAROXABAN
     Indication: PROPHYLAXIS
     Dosage: 15 MG, UNK
     Route: 065
  8. PANTHENOL [Concomitant]
     Active Substance: PANTHENOL
     Indication: PROPHYLAXIS
     Dosage: UNK, PRN
     Route: 065
  9. XUSAL [Concomitant]
     Active Substance: LEVOCETIRIZINE DIHYDROCHLORIDE
     Indication: PRODUCT USED FOR UNKNOWN INDICATION
     Dosage: UNK
     Route: 065
     Dates: start: 20180809

REACTIONS (16)
  - Decreased appetite [Recovered/Resolved]
  - Oedema [Not Recovered/Not Resolved]
  - Pneumonitis [Recovering/Resolving]
  - Pain [Recovered/Resolved]
  - Dyspnoea [Not Recovered/Not Resolved]
  - Anaemia [Recovered/Resolved]
  - Haemoptysis [Not Recovered/Not Resolved]
  - Vomiting [Recovered/Resolved]
  - Fatigue [Recovered/Resolved]
  - Skin disorder [Recovered/Resolved]
  - Pruritus [Recovered/Resolved]
  - Cough [Recovered/Resolved]
  - Nausea [Recovered/Resolved]
  - Vertigo [Recovered/Resolved]
  - General physical health deterioration [Unknown]
  - Diarrhoea [Recovered/Resolved]

NARRATIVE: CASE EVENT DATE: 20170904
